FAERS Safety Report 9095639 (Version 2)
Quarter: 2013Q4

REPORT INFORMATION
  Report Type: Report from Study
  Country: CA (occurrence: CA)
  Receive Date: 20130220
  Receipt Date: 20131025
  Transmission Date: 20140711
  Serious: Yes (Death, Hospitalization)
  Sender: FDA-Public Use
  Company Number: PHHY2011CA097590

PATIENT
  Age: 82 Year
  Sex: Female

DRUGS (3)
  1. ACLASTA [Suspect]
     Indication: OSTEOPOROSIS
     Dosage: UNK
     Route: 042
     Dates: start: 20101217
  2. ACLASTA [Suspect]
     Dosage: UNK
     Route: 042
     Dates: start: 20111214
  3. ACLASTA [Suspect]
     Dosage: UNK
     Route: 042
     Dates: start: 2013

REACTIONS (5)
  - Death [Fatal]
  - Coronary artery disease [Unknown]
  - Fall [Unknown]
  - Muscle strain [Unknown]
  - Pain [Unknown]
